FAERS Safety Report 23591354 (Version 3)
Quarter: 2024Q3

REPORT INFORMATION
  Report Type: Report from Study
  Country: CA (occurrence: CA)
  Receive Date: 20240304
  Receipt Date: 20240913
  Transmission Date: 20241017
  Serious: Yes (Death, Other)
  Sender: VIIV
  Company Number: CA-VIIV HEALTHCARE LIMITED-CA2023079136

PATIENT

DRUGS (8)
  1. CABOTEGRAVIR\RILPIVIRINE [Suspect]
     Active Substance: CABOTEGRAVIR\RILPIVIRINE
     Indication: HIV infection
     Dosage: UNK UNK, Q2M (600MG/3ML) CABOTEGRAVIR INJECTION AND (900MG/3ML) RILPIVIRINE INJECTION
     Route: 030
     Dates: start: 20230530
  2. CABOTEGRAVIR\RILPIVIRINE [Suspect]
     Active Substance: CABOTEGRAVIR\RILPIVIRINE
  3. CABOTEGRAVIR\RILPIVIRINE [Suspect]
     Active Substance: CABOTEGRAVIR\RILPIVIRINE
  4. CABOTEGRAVIR\RILPIVIRINE [Suspect]
     Active Substance: CABOTEGRAVIR\RILPIVIRINE
     Indication: HIV infection
     Dosage: UNK, UNK, Q2M, INITIATION(1ST + 2ND INJ 3ML(600/900MG) -1 MONTH APART,CONTINUATION INJ^S 2 MONTHS
     Route: 030
  5. CABOTEGRAVIR\RILPIVIRINE [Suspect]
     Active Substance: CABOTEGRAVIR\RILPIVIRINE
     Indication: HIV infection
     Dosage: UNK UNK, Q2M, CONTINUATION INJ^S 2 MONTHS
     Route: 030
  6. CABOTEGRAVIR\RILPIVIRINE [Suspect]
     Active Substance: CABOTEGRAVIR\RILPIVIRINE
     Indication: HIV infection
     Dosage: UNK UNK, Q2M (CABOTEGRAVIR 600MG/3ML RILPIVIRINE 900MG/3ML)
     Route: 030
  7. CABOTEGRAVIR\RILPIVIRINE [Suspect]
     Active Substance: CABOTEGRAVIR\RILPIVIRINE
     Indication: HIV infection
     Dosage: UNK UNK, Q2M, CABOTEGRAVIR 600MG/3ML RILPIVIRINE 900MG/3ML
     Route: 030
  8. CABOTEGRAVIR\RILPIVIRINE [Suspect]
     Active Substance: CABOTEGRAVIR\RILPIVIRINE
     Indication: HIV infection
     Dosage: UNK UNK, Q2M, CABOTEGRAVIR 600MG/3ML RILPIVIRINE 900MG/3ML
     Route: 030
     Dates: end: 20240828

REACTIONS (9)
  - Overdose [Fatal]
  - Tendon disorder [Unknown]
  - Face lift [Unknown]
  - Dental implantation [Unknown]
  - Hair transplant [Unknown]
  - Injection site pain [Unknown]
  - Injection site infection [Unknown]
  - Injection site erythema [Recovered/Resolved]
  - Injection site swelling [Unknown]

NARRATIVE: CASE EVENT DATE: 20230530
